FAERS Safety Report 13745108 (Version 1)
Quarter: 2017Q3

REPORT INFORMATION
  Report Type: Spontaneous
  Country: US (occurrence: US)
  Receive Date: 20170711
  Receipt Date: 20170711
  Transmission Date: 20171127
  Serious: Yes (Disabling)
  Sender: FDA-Public Use
  Company Number: None

PATIENT
  Age: 81 Year
  Sex: Male
  Weight: 56.25 kg

DRUGS (12)
  1. TIMOLOL MALEATE. [Concomitant]
     Active Substance: TIMOLOL MALEATE
  2. MAGNESIUM CITRATE. [Concomitant]
     Active Substance: MAGNESIUM CITRATE
  3. ASPIRIN. [Concomitant]
     Active Substance: ASPIRIN
  4. TAMSULOSIN  HCL [Suspect]
     Active Substance: TAMSULOSIN
     Indication: BENIGN PROSTATIC HYPERPLASIA
     Dosage: ?          OTHER STRENGTH:MG;QUANTITY:1 CAPSULE(S);?
     Route: 048
     Dates: start: 20160524, end: 20160624
  5. AMLODIPINE [Concomitant]
     Active Substance: AMLODIPINE BESYLATE
  6. GLUCOSAMINE SULFATE [Concomitant]
     Active Substance: GLUCOSAMINE SULFATE
  7. OMEPRAZOLE. [Concomitant]
     Active Substance: OMEPRAZOLE
  8. MULTI VITAMIN [Concomitant]
     Active Substance: VITAMINS
  9. ATORVASTATIN [Concomitant]
     Active Substance: ATORVASTATIN
  10. UBIQUINOL [Concomitant]
     Active Substance: UBIQUINOL
  11. HYALURONIC ACID [Concomitant]
     Active Substance: HYALURONIC ACID
  12. FISH OIL [Concomitant]
     Active Substance: FISH OIL

REACTIONS (2)
  - Photopsia [None]
  - Device dislocation [None]

NARRATIVE: CASE EVENT DATE: 20161215
